FAERS Safety Report 9742603 (Version 3)
Quarter: 2015Q3

REPORT INFORMATION
  Report Type: Spontaneous
  Country: US (occurrence: US)
  Receive Date: 20131210
  Receipt Date: 20150804
  Transmission Date: 20151125
  Serious: No
  Sender: FDA-Public Use
  Company Number: US-GILEAD-2009-0024646

PATIENT
  Age: 69 Year
  Sex: Male
  Weight: 116.12 kg

DRUGS (16)
  1. GLYNASE [Concomitant]
     Active Substance: GLYBURIDE
  2. VASOTEC [Concomitant]
     Active Substance: ENALAPRIL MALEATE
  3. TENORMIN [Concomitant]
     Active Substance: ATENOLOL
  4. HYDROCHLOROTHIAZIDE. [Concomitant]
     Active Substance: HYDROCHLOROTHIAZIDE
  5. ADVAIR HFA [Concomitant]
     Active Substance: FLUTICASONE PROPIONATE\SALMETEROL XINAFOATE
  6. ERGOCALCIFEROL/NICOTINAMIDE/RETINOL/ASCORBIC ACID/FOLIC ACID/PANTHENOL/RIBOFLAVIN/THIAMINE HYDROCHLO [Concomitant]
  7. LETAIRIS [Suspect]
     Active Substance: AMBRISENTAN
     Indication: PULMONARY ARTERIAL HYPERTENSION
     Route: 048
     Dates: start: 20090921
  8. ZOCOR [Concomitant]
     Active Substance: SIMVASTATIN
  9. PROTONIX [Concomitant]
     Active Substance: PANTOPRAZOLE SODIUM
  10. GLUCOPHAGE [Concomitant]
     Active Substance: METFORMIN HYDROCHLORIDE
  11. LASIX [Concomitant]
     Active Substance: FUROSEMIDE
  12. REVATIO [Concomitant]
     Active Substance: SILDENAFIL CITRATE
  13. VERAPAMIL [Concomitant]
     Active Substance: VERAPAMIL HYDROCHLORIDE
  14. METANX [Concomitant]
     Active Substance: LEVOMEFOLATE CALCIUM\METHYLCOBALAMIN\PYRIDOXAL PHOSPHATE ANHYDROUS
  15. ADULT ASPIRIN [Concomitant]
  16. HUMALOG [Concomitant]
     Active Substance: INSULIN LISPRO

REACTIONS (5)
  - Increased appetite [Unknown]
  - Palpitations [Unknown]
  - Weight increased [Unknown]
  - Flushing [Unknown]
  - Fluid retention [Unknown]
